FAERS Safety Report 8382377 (Version 8)
Quarter: 2014Q1

REPORT INFORMATION
  Report Type: Spontaneous
  Country: US (occurrence: US)
  Receive Date: 20120201
  Receipt Date: 20140205
  Transmission Date: 20141002
  Serious: Yes (Other)
  Sender: FDA-Public Use
  Company Number: US-PFIZER INC-2012023561

PATIENT
  Age: 52 Year
  Sex: Male
  Weight: 77.1 kg

DRUGS (4)
  1. LYRICA [Suspect]
     Indication: NERVE INJURY
     Dosage: 300 MG, 3X/DAY
     Route: 048
  2. LYRICA [Suspect]
     Indication: NEURALGIA
     Dosage: 150 MG, 3X/DAY
     Route: 048
  3. FENTANYL [Concomitant]
     Dosage: 75 MG/HR Q 72 H
  4. HYDROCODONE [Concomitant]
     Dosage: 10/325MG  Q 6 HRS
     Route: 048

REACTIONS (7)
  - Brain neoplasm [Unknown]
  - Balance disorder [Unknown]
  - Road traffic accident [Unknown]
  - Limb injury [Unknown]
  - Dysgraphia [Unknown]
  - Nervousness [Unknown]
  - Pain in extremity [Unknown]
